FAERS Safety Report 15906512 (Version 1)
Quarter: 2019Q1

REPORT INFORMATION
  Report Type: Spontaneous
  Country: US (occurrence: US)
  Receive Date: 20190110
  Receipt Date: 20190110
  Transmission Date: 20190417
  Serious: No
  Sender: FDA-Public Use
  Company Number: None

PATIENT
  Age: 61 Year
  Sex: Female

DRUGS (1)
  1. IBRANCE [Suspect]
     Active Substance: PALBOCICLIB
     Route: 048
     Dates: start: 201809

REACTIONS (5)
  - Madarosis [None]
  - Rash [None]
  - Vulvovaginal dryness [None]
  - Alopecia [None]
  - Pruritus [None]

NARRATIVE: CASE EVENT DATE: 20190110
